FAERS Safety Report 7512996-X (Version None)
Quarter: 2011Q2

REPORT INFORMATION
  Report Type: 
  Country: None (occurrence: None)
  Receive Date: 20110531
  Receipt Date: 20100414
  Transmission Date: 20111010
  Serious: Yes (Other)
  Sender: FDA-Public Use
  Company Number: US-NOVEN-ALL1-2010-02274

PATIENT

DRUGS (2)
  1. DAYTRANA [Suspect]
     Dosage: 30 MG, 1X/DAY:QD
     Route: 062
     Dates: start: 20090401, end: 20100401
  2. MULTI-VITAMINS [Concomitant]
     Dosage: UNK, 1X/DAY:QD (ONE TABLET DAILY)
     Route: 048

REACTIONS (3)
  - GROWTH RETARDATION [None]
  - HEART RATE INCREASED [None]
  - ABNORMAL LOSS OF WEIGHT [None]
